FAERS Safety Report 9315132 (Version 1)
Quarter: 2013Q2

REPORT INFORMATION
  Report Type: Spontaneous
  Country: US (occurrence: US)
  Receive Date: 20130529
  Receipt Date: 20130529
  Transmission Date: 20140414
  Serious: Yes (Other)
  Sender: FDA-Public Use
  Company Number: US-PFIZER INC-2013163390

PATIENT
  Sex: Female

DRUGS (1)
  1. VISTARIL [Suspect]
     Indication: ANXIETY
     Dosage: UNK
     Dates: end: 201304

REACTIONS (3)
  - Myocardial infarction [Unknown]
  - Drug hypersensitivity [Unknown]
  - Cardiac disorder [Unknown]
